FAERS Safety Report 15948526 (Version 1)
Quarter: 2019Q1

REPORT INFORMATION
  Report Type: Spontaneous
  Country: DK (occurrence: DK)
  Receive Date: 20190212
  Receipt Date: 20190212
  Transmission Date: 20190417
  Serious: Yes (Hospitalization)
  Sender: FDA-Public Use
  Company Number: DK-ACCORD-106514

PATIENT
  Age: 28 Year
  Sex: Male

DRUGS (7)
  1. CLOZAPINE. [Suspect]
     Active Substance: CLOZAPINE
     Indication: SCHIZOPHRENIA
     Route: 048
  2. PANTOPRAZOLE [Concomitant]
     Active Substance: PANTOPRAZOLE
     Route: 048
  3. TRUXAL [Concomitant]
     Active Substance: CHLORPROTHIXENE
     Route: 048
  4. ATORVASTATIN [Concomitant]
     Active Substance: ATORVASTATIN
     Route: 048
  5. CIPRALEX [Concomitant]
     Active Substance: ESCITALOPRAM OXALATE
     Route: 048
  6. ABILIFY [Concomitant]
     Active Substance: ARIPIPRAZOLE
     Route: 048
  7. TIMOSAN DEPOT [Concomitant]
     Dosage: STYRKE: 1 MG/G.
     Route: 050

REACTIONS (11)
  - Thrombosis [Unknown]
  - Type 2 diabetes mellitus [Recovering/Resolving]
  - Angina pectoris [Not Recovered/Not Resolved]
  - Weight increased [Not Recovered/Not Resolved]
  - Arteriosclerosis coronary artery [Not Recovered/Not Resolved]
  - Dizziness [Not Recovered/Not Resolved]
  - Breast pain [Unknown]
  - Heart rate increased [Not Recovered/Not Resolved]
  - Sedation [Unknown]
  - Hypertension [Not Recovered/Not Resolved]
  - Atrial fibrillation [Not Recovered/Not Resolved]

NARRATIVE: CASE EVENT DATE: 19871106
